FAERS Safety Report 13939024 (Version 1)
Quarter: 2017Q3

REPORT INFORMATION
  Report Type: Spontaneous
  Country: US (occurrence: US)
  Receive Date: 20170906
  Receipt Date: 20170906
  Transmission Date: 20171127
  Serious: No
  Sender: FDA-Public Use
  Company Number: US-TEVA-777701ACC

PATIENT
  Sex: Male

DRUGS (1)
  1. MONTELUKAST SODIUM. [Suspect]
     Active Substance: MONTELUKAST SODIUM
     Route: 065
     Dates: start: 20170602, end: 20170606

REACTIONS (6)
  - Product substitution issue [Unknown]
  - Anxiety [Recovering/Resolving]
  - Agitation [Recovering/Resolving]
  - Blood glucose increased [Unknown]
  - Neuropsychiatric symptoms [Unknown]
  - Abnormal dreams [Recovering/Resolving]

NARRATIVE: CASE EVENT DATE: 20170602
